FAERS Safety Report 17577541 (Version 1)
Quarter: 2020Q1

REPORT INFORMATION
  Report Type: Spontaneous
  Country: US (occurrence: US)
  Receive Date: 20200324
  Receipt Date: 20200324
  Transmission Date: 20200409
  Serious: Yes (Other)
  Sender: FDA-Public Use
  Company Number: None

PATIENT
  Age: 34 Year
  Sex: Female
  Weight: 54 kg

DRUGS (1)
  1. VIENVA TM [Suspect]
     Active Substance: ETHINYL ESTRADIOL\LEVONORGESTREL

REACTIONS (6)
  - Pharyngeal swelling [None]
  - Autoimmune thyroiditis [None]
  - Weight increased [None]
  - Anxiety [None]
  - Pregnancy on contraceptive [None]
  - Neurological symptom [None]

NARRATIVE: CASE EVENT DATE: 20190101
